FAERS Safety Report 20479769 (Version 1)
Quarter: 2022Q1

REPORT INFORMATION
  Report Type: Spontaneous
  Country: US (occurrence: None)
  Receive Date: 20220215
  Receipt Date: 20220215
  Transmission Date: 20220423
  Serious: Yes (Other)
  Sender: FDA-Public Use
  Company Number: None

PATIENT
  Age: 39 Year
  Sex: Male
  Weight: 76.95 kg

DRUGS (18)
  1. SOTROVIMAB [Suspect]
     Active Substance: SOTROVIMAB
     Indication: COVID-19
     Dosage: OTHER FREQUENCY : ONCE;?
     Route: 041
     Dates: start: 20220211, end: 20220211
  2. oncology regime [Concomitant]
  3. SULFAMETHOXAZOLE\TRIMETHOPRIM [Concomitant]
     Active Substance: SULFAMETHOXAZOLE\TRIMETHOPRIM
     Dates: start: 20201120
  4. SENNA [Concomitant]
     Active Substance: SENNA LEAF\SENNOSIDES\SENNOSIDES A AND B
     Dates: start: 20210328
  5. PREDNISONE [Concomitant]
     Active Substance: PREDNISONE
     Dates: start: 20201119
  6. POLYETHYLENE GLYCOL [Concomitant]
     Active Substance: POLYETHYLENE GLYCOL
     Dates: start: 20201119
  7. PANTOPRAZOLE SODIUM [Concomitant]
     Active Substance: PANTOPRAZOLE SODIUM
     Dates: start: 20201120
  8. OXYCODONE [Concomitant]
     Active Substance: OXYCODONE
     Dates: start: 20201119
  9. ONDANSETRON [Concomitant]
     Active Substance: ONDANSETRON
     Dates: start: 20201210
  10. METHOTREXATE [Concomitant]
     Active Substance: METHOTREXATE
     Dates: start: 20210729
  11. MERCAPTOPURINE [Concomitant]
     Active Substance: MERCAPTOPURINE
     Dates: start: 20201208
  12. MEMANTINE [Concomitant]
     Active Substance: MEMANTINE
     Dates: start: 20210609
  13. MELATONIN [Concomitant]
     Active Substance: MELATONIN
     Dates: start: 20201119
  14. ENOXAPARIN [Concomitant]
     Active Substance: ENOXAPARIN
     Dates: start: 20201203
  15. DOCUSATE SODIUM [Concomitant]
     Active Substance: DOCUSATE SODIUM
     Dates: start: 20201119
  16. DEXAMETHASONE [Concomitant]
     Active Substance: DEXAMETHASONE
     Dates: start: 20210421
  17. ACYCLOVIR [Concomitant]
     Active Substance: ACYCLOVIR
     Dates: start: 20201119
  18. floricet [Concomitant]
     Dates: start: 20210524

REACTIONS (7)
  - Cellulitis [None]
  - Deep vein thrombosis [None]
  - Adverse drug reaction [None]
  - Infusion related reaction [None]
  - Erythema [None]
  - Feeling hot [None]
  - Pain in extremity [None]

NARRATIVE: CASE EVENT DATE: 20220212
